FAERS Safety Report 16248320 (Version 8)
Quarter: 2020Q3

REPORT INFORMATION
  Report Type: Report from Study
  Country: None (occurrence: CA)
  Receive Date: 20190429
  Receipt Date: 20200917
  Transmission Date: 20201102
  Serious: Yes (Hospitalization, Other)
  Sender: FDA-Public Use
  Company Number: CA-ABBVIE-19K-028-2756899-00

PATIENT
  Age: 63 Year
  Sex: Female

DRUGS (6)
  1. ERTAPENEM. [Suspect]
     Active Substance: ERTAPENEM SODIUM
     Indication: INFECTION
     Route: 042
     Dates: start: 201903, end: 2019
  2. HUMIRA [Suspect]
     Active Substance: ADALIMUMAB
     Route: 058
  3. HUMIRA [Suspect]
     Active Substance: ADALIMUMAB
     Route: 058
  4. VANCOMYCIN [Suspect]
     Active Substance: VANCOMYCIN
     Indication: INFECTION
     Route: 042
     Dates: start: 2019
  5. HUMIRA [Suspect]
     Active Substance: ADALIMUMAB
     Indication: CROHN^S DISEASE
     Route: 058
     Dates: start: 20151128
  6. CIPRO [Suspect]
     Active Substance: CIPROFLOXACIN HYDROCHLORIDE
     Indication: INFECTION
     Route: 065

REACTIONS (26)
  - Mass [Not Recovered/Not Resolved]
  - Intestinal mass [Unknown]
  - Bacterial test positive [Not Recovered/Not Resolved]
  - Impaired healing [Unknown]
  - Infection [Unknown]
  - Inflammation [Unknown]
  - Crohn^s disease [Unknown]
  - Anal stenosis [Unknown]
  - Haemoglobin increased [Unknown]
  - Colonic fistula [Not Recovered/Not Resolved]
  - Anal fistula [Unknown]
  - Gastrointestinal disorder [Not Recovered/Not Resolved]
  - Diarrhoea [Not Recovered/Not Resolved]
  - Pain [Not Recovered/Not Resolved]
  - Drug ineffective [Not Recovered/Not Resolved]
  - Levator syndrome [Unknown]
  - Angiopathy [Unknown]
  - Bloody discharge [Not Recovered/Not Resolved]
  - Anorectal disorder [Not Recovered/Not Resolved]
  - Skin induration [Unknown]
  - Rash erythematous [Unknown]
  - Pseudopolyp [Unknown]
  - Pain [Not Recovered/Not Resolved]
  - Rash papular [Not Recovered/Not Resolved]
  - Enterococcal infection [Not Recovered/Not Resolved]
  - Enterocolonic fistula [Unknown]

NARRATIVE: CASE EVENT DATE: 201904
